FAERS Safety Report 12704230 (Version 1)
Quarter: 2016Q3

REPORT INFORMATION
  Report Type: Report from Study
  Country: US (occurrence: US)
  Receive Date: 20160831
  Receipt Date: 20160831
  Transmission Date: 20161109
  Serious: Yes (Disabling, Other)
  Sender: FDA-Public Use
  Company Number: US-009507513-1608USA013861

PATIENT
  Sex: Female

DRUGS (1)
  1. JANUVIA [Suspect]
     Active Substance: SITAGLIPTIN PHOSPHATE
     Dosage: UNK
     Route: 048

REACTIONS (6)
  - Myocardial infarction [Unknown]
  - Wheelchair user [Unknown]
  - Coronary artery disease [Unknown]
  - Malaise [Unknown]
  - Cerebrovascular accident [Unknown]
  - Vomiting [Unknown]

NARRATIVE: CASE EVENT DATE: 2010
